FAERS Safety Report 15791063 (Version 1)
Quarter: 2019Q1

REPORT INFORMATION
  Report Type: Spontaneous
  Country: US (occurrence: US)
  Receive Date: 20190104
  Receipt Date: 20190104
  Transmission Date: 20190417
  Serious: No
  Sender: FDA-Public Use
  Company Number: US-GALDERMA-US18002818

PATIENT
  Sex: Male

DRUGS (1)
  1. METROGEL [Suspect]
     Active Substance: METRONIDAZOLE
     Indication: ROSACEA
     Route: 061

REACTIONS (2)
  - Swelling [Unknown]
  - Rash erythematous [Unknown]
